FAERS Safety Report 15752064 (Version 3)
Quarter: 2019Q1

REPORT INFORMATION
  Report Type: Report from Study
  Country: US (occurrence: US)
  Receive Date: 20181221
  Receipt Date: 20190219
  Transmission Date: 20190417
  Serious: Yes (Hospitalization)
  Sender: FDA-Public Use
  Company Number: US-ACTELION-A-NJ2017-164444

PATIENT
  Age: 68 Year
  Sex: Male

DRUGS (1)
  1. OPSUMIT [Suspect]
     Active Substance: MACITENTAN
     Indication: PULMONARY ARTERIAL HYPERTENSION
     Dosage: 10 MG, QD
     Route: 048
     Dates: start: 20131213

REACTIONS (9)
  - Nasopharyngitis [Unknown]
  - Hospitalisation [Unknown]
  - Pain [Unknown]
  - Cystitis [Unknown]
  - Bronchitis [Unknown]
  - Fluid retention [Unknown]
  - Myocardial infarction [Unknown]
  - Heart rate irregular [Unknown]
  - Nephrolithiasis [Unknown]
